FAERS Safety Report 22962362 (Version 2)
Quarter: 2024Q4

REPORT INFORMATION
  Report Type: Spontaneous
  Country: PT (occurrence: PT)
  Receive Date: 20230920
  Receipt Date: 20241227
  Transmission Date: 20250114
  Serious: Yes (Hospitalization, Other)
  Sender: SAMSUNG BIOEPIS
  Company Number: PT-Accord-372621

PATIENT
  Age: 40 Year
  Sex: Female

DRUGS (3)
  1. TRASTUZUMAB [Suspect]
     Active Substance: TRASTUZUMAB
     Indication: Invasive breast carcinoma
     Dosage: FIRST CYCLE (3 IN TOTAL), CYCLIC, DOSE: UNKNOWN;
  2. PERTUZUMAB [Suspect]
     Active Substance: PERTUZUMAB
     Indication: Invasive breast carcinoma
     Dosage: FIRST CYCLE (3 IN TOTAL), CYCLIC, DOSE: UNKNOWN;
  3. DOXORUBICIN [Suspect]
     Active Substance: DOXORUBICIN
     Indication: Invasive breast carcinoma
     Dosage: FIRST CYCLE (3 IN TOTAL), CYCLIC, DOSE: UNKNOWN;

REACTIONS (2)
  - Ventricular dysfunction [Unknown]
  - Cardiotoxicity [Unknown]
